FAERS Safety Report 24335566 (Version 2)
Quarter: 2024Q3

REPORT INFORMATION
  Report Type: Report from Study
  Country: CZ (occurrence: CZ)
  Receive Date: 20240919
  Receipt Date: 20240930
  Transmission Date: 20241016
  Serious: Yes (Other)
  Sender: JOHNSON AND JOHNSON
  Company Number: CZ-CELLTRION INC.-2024CZ021064

PATIENT
  Age: 44 Year
  Sex: Male

DRUGS (10)
  1. REMICADE [Suspect]
     Active Substance: INFLIXIMAB
     Indication: Ankylosing spondylitis
     Dosage: 120 MG, SINGLE DOSE
     Route: 042
     Dates: start: 20240418, end: 20240418
  2. REMICADE [Suspect]
     Active Substance: INFLIXIMAB
     Dosage: 120 MG, SINGLE DOSE
     Route: 042
     Dates: start: 20240404, end: 20240404
  3. REMICADE [Suspect]
     Active Substance: INFLIXIMAB
     Dosage: 120 MG, Q2WEEKS
     Route: 042
     Dates: start: 20240131
  4. REMICADE [Suspect]
     Active Substance: INFLIXIMAB
     Dosage: 120 MG, SINGLE DOSE
     Route: 042
     Dates: start: 20240516, end: 20240516
  5. REMICADE [Suspect]
     Active Substance: INFLIXIMAB
     Dosage: 120 MG, SINGLE DOSE
     Route: 042
     Dates: start: 20240530, end: 20240530
  6. REMICADE [Suspect]
     Active Substance: INFLIXIMAB
     Dosage: 120 MG, SINGLE DOSE
     Route: 042
     Dates: start: 20240613, end: 20240613
  7. REMICADE [Suspect]
     Active Substance: INFLIXIMAB
     Dosage: 120 MG, SINGLE DOSE?DATES; 27/JUN/2024, 2/MAY/2024, 25/JUL/2024.
     Route: 042
     Dates: start: 20240711, end: 20240711
  8. REMICADE [Suspect]
     Active Substance: INFLIXIMAB
     Dosage: 120 MG, SINGLE DOSE
     Route: 042
     Dates: start: 20240725, end: 20240725
  9. REMICADE [Suspect]
     Active Substance: INFLIXIMAB
     Dosage: 120 MG, SINGLE DOSE
     Route: 042
     Dates: start: 20240502, end: 20240502
  10. REMICADE [Suspect]
     Active Substance: INFLIXIMAB
     Dosage: 120 MG, SINGLE DOSE
     Route: 042
     Dates: start: 20240627, end: 20240627

REACTIONS (1)
  - Lupus-like syndrome [Recovering/Resolving]

NARRATIVE: CASE EVENT DATE: 20240726
